FAERS Safety Report 5917368-7 (Version None)
Quarter: 2008Q4

REPORT INFORMATION
  Report Type: 
  Country: None (occurrence: None)
  Receive Date: 20081014
  Receipt Date: 20081003
  Transmission Date: 20090506
  Serious: Yes (Other)
  Sender: FDA-Public Use
  Company Number: US-WYE-H06253308

PATIENT
  Age: 26 Month
  Sex: Female

DRUGS (2)
  1. GUAIFENESIN [Suspect]
     Dosage: UNKNOWN
     Route: 048
  2. CEFALEXIN [Suspect]
     Dosage: UNKNOWN
     Route: 048

REACTIONS (3)
  - DRUG HYPERSENSITIVITY [None]
  - RASH GENERALISED [None]
  - RASH PAPULAR [None]
